FAERS Safety Report 17006302 (Version 1)
Quarter: 2019Q4

REPORT INFORMATION
  Report Type: Spontaneous
  Country: US (occurrence: US)
  Receive Date: 20191107
  Receipt Date: 20191107
  Transmission Date: 20200122
  Serious: No
  Sender: FDA-Public Use
  Company Number: US-LUNDBECK-DKLU3006489

PATIENT
  Age: 82 Year
  Sex: Male

DRUGS (3)
  1. NORTHERA [Suspect]
     Active Substance: DROXIDOPA
     Indication: PARKINSON^S DISEASE
     Dosage: TITRATION COMPLETE
     Route: 048
     Dates: start: 20190628
  2. NORTHERA [Suspect]
     Active Substance: DROXIDOPA
     Indication: ORTHOSTATIC HYPOTENSION
     Dosage: TITRATION COMPLETE
     Route: 048
  3. NORTHERA [Suspect]
     Active Substance: DROXIDOPA
     Dosage: TITRATION COMPLETE
     Route: 048

REACTIONS (3)
  - Product preparation issue [Unknown]
  - Dysphagia [Not Recovered/Not Resolved]
  - Wrong dose [Unknown]

NARRATIVE: CASE EVENT DATE: 20191022
